FAERS Safety Report 4876451-8 (Version None)
Quarter: 2005Q4

REPORT INFORMATION
  Report Type: 
  Country: None (occurrence: None)
  Receive Date: 20051206
  Receipt Date: 20051010
  Transmission Date: 20060501
  Serious: No
  Sender: FDA-Public Use
  Company Number: USA0510110492

PATIENT
  Age: 68 Year
  Sex: Female

DRUGS (7)
  1. CYMBALTA [Suspect]
     Indication: DEPRESSION
     Dosage: 30 MG
     Dates: start: 20050101, end: 20050101
  2. DILANTIN [Concomitant]
  3. MYCILLIN [Concomitant]
  4. XANAX [Concomitant]
  5. CARDURA [Concomitant]
  6. OTC PAIN PILLS [Concomitant]
  7. VICODIN [Concomitant]

REACTIONS (1)
  - EYE PAIN [None]
